FAERS Safety Report 21756486 (Version 2)
Quarter: 2023Q1

REPORT INFORMATION
  Report Type: Spontaneous
  Country: US (occurrence: None)
  Receive Date: 20221220
  Receipt Date: 20230127
  Transmission Date: 20230418
  Serious: No
  Sender: FDA-Public Use
  Company Number: 2022A379818

PATIENT
  Age: 74 Year

DRUGS (2)
  1. BUDESONIDE\FORMOTEROL\GLYCOPYRRONIUM [Suspect]
     Active Substance: BUDESONIDE\FORMOTEROL\GLYCOPYRRONIUM
     Indication: Asthma
     Dosage: 160UG/MG TWO TIMES A DAY
     Route: 055
     Dates: start: 202204
  2. ALBUTEROL [Concomitant]
     Active Substance: ALBUTEROL

REACTIONS (7)
  - Dyspnoea [Unknown]
  - Product use issue [Unknown]
  - Device use issue [Unknown]
  - Product dose omission issue [Unknown]
  - Drug dose omission by device [Unknown]
  - Wrong technique in device usage process [Unknown]
  - Device delivery system issue [Unknown]

NARRATIVE: CASE EVENT DATE: 20220101
